FAERS Safety Report 17361145 (Version 1)
Quarter: 2020Q1

REPORT INFORMATION
  Report Type: Spontaneous
  Country: US (occurrence: US)
  Receive Date: 20200117
  Receipt Date: 20200117
  Transmission Date: 20200409
  Serious: No
  Sender: FDA-Public Use
  Company Number: None

PATIENT

DRUGS (2)
  1. FLUVAX [Suspect]
     Active Substance: INFLUENZA VIRUS VACCINE
  2. INSULIN [Suspect]
     Active Substance: INSULIN NOS

REACTIONS (1)
  - Wrong product administered [None]

NARRATIVE: CASE EVENT DATE: 2019
